FAERS Safety Report 5143606-7 (Version None)
Quarter: 2006Q4

REPORT INFORMATION
  Report Type: 
  Country: None (occurrence: None)
  Receive Date: 20061030
  Receipt Date: 20061016
  Transmission Date: 20070319
  Serious: Yes (Other)
  Sender: FDA-Public Use
  Company Number: 2006127035

PATIENT
  Sex: Female

DRUGS (4)
  1. GEODON [Suspect]
     Indication: BIPOLAR DISORDER
     Dosage: 120 MG
     Dates: start: 20040101
  2. PAXIL [Concomitant]
  3. CLONAPIN (CLONAZEPAM) [Concomitant]
  4. TEGRETOL [Concomitant]

REACTIONS (2)
  - TACHYPHRENIA [None]
  - TARDIVE DYSKINESIA [None]
